FAERS Safety Report 6683145-5 (Version None)
Quarter: 2010Q2

REPORT INFORMATION
  Report Type: 
  Country: None (occurrence: None)
  Receive Date: 20100415
  Receipt Date: 20100409
  Transmission Date: 20101027
  Serious: Yes (Other)
  Sender: FDA-Public Use
  Company Number: FR-BRISTOL-MYERS SQUIBB COMPANY-15057805

PATIENT
  Age: 60 Year
  Sex: Female

DRUGS (7)
  1. APROVEL TABS [Suspect]
     Indication: HYPERTENSION
  2. ACTONEL [Suspect]
     Dates: start: 20020401, end: 20081201
  3. CACIT [Suspect]
     Indication: OSTEOPOROSIS
     Dates: start: 20010101
  4. TAHOR [Suspect]
     Indication: DYSLIPIDAEMIA
  5. ARAVA [Suspect]
  6. CORTANCYL [Suspect]
     Indication: RHEUMATOID ARTHRITIS
  7. NEXIUM [Suspect]
     Indication: GASTROOESOPHAGEAL REFLUX DISEASE

REACTIONS (3)
  - OSTEONECROSIS [None]
  - PURULENCE [None]
  - WOUND DEHISCENCE [None]
